FAERS Safety Report 9058865 (Version 3)
Quarter: 2013Q4

REPORT INFORMATION
  Report Type: Spontaneous
  Country: JP (occurrence: JP)
  Receive Date: 20130211
  Receipt Date: 20131003
  Transmission Date: 20140711
  Serious: Yes (Death, Life-Threatening, Hospitalization)
  Sender: FDA-Public Use
  Company Number: JP-ASTRAZENECA-2012SE93724

PATIENT
  Age: 1017 Month
  Sex: Male
  Weight: 74 kg

DRUGS (4)
  1. OMEPRAL [Suspect]
     Indication: GASTRITIS
     Route: 048
     Dates: start: 20121030, end: 20121207
  2. PRAZAXA [Suspect]
     Indication: ATRIAL FIBRILLATION
     Route: 048
     Dates: start: 20110915, end: 20121207
  3. ALINAMIN-F [Suspect]
     Indication: NEURALGIA
     Route: 048
     Dates: start: 20110623, end: 20121207
  4. LOXONIN [Suspect]
     Indication: BACK PAIN
     Route: 048
     Dates: start: 201212, end: 20121207

REACTIONS (4)
  - Hepatic failure [Fatal]
  - Jaundice [Fatal]
  - Hepatic function abnormal [Fatal]
  - Fall [Unknown]
